FAERS Safety Report 6432938-8 (Version None)
Quarter: 2009Q4

REPORT INFORMATION
  Report Type: 
  Country: None (occurrence: None)
  Receive Date: 20091105
  Receipt Date: 20091022
  Transmission Date: 20100525
  Serious: Yes (Hospitalization)
  Sender: FDA-Public Use
  Company Number: 1000009791

PATIENT
  Age: 50 Year
  Sex: Female

DRUGS (7)
  1. ESCITALOPRAM OXALATE [Suspect]
     Indication: DEPRESSION
     Dosage: 15 MG (15 MG,  1 IN 1 D),ORAL
     Route: 048
     Dates: start: 20090803, end: 20090815
  2. ESCITALOPRAM OXALATE [Suspect]
     Indication: DEPRESSION
     Dosage: 5 MG (5 MG, 1 IN 1 D),ORAL, 10 MG (10 MG, 1 IN 1 D), ORAL
     Route: 048
     Dates: start: 20090717, end: 20090722
  3. ESCITALOPRAM OXALATE [Suspect]
     Indication: DEPRESSION
     Dosage: 5 MG (5 MG, 1 IN 1 D),ORAL, 10 MG (10 MG, 1 IN 1 D), ORAL
     Route: 048
     Dates: start: 20090723, end: 20090802
  4. LORAZEPAM                            (0.5 MILLIGRAM, TABLETS) [Concomitant]
  5. IBANDRONIC ACID     (INJECTION FOR INFUSION) [Concomitant]
  6. CALCIUM GLUCONATE [Concomitant]
  7. VALERIANA OFFICINALIS           (TABLETS) [Concomitant]

REACTIONS (4)
  - DERMATITIS ALLERGIC [None]
  - PAIN IN JAW [None]
  - RASH PUSTULAR [None]
  - SCAB [None]
